FAERS Safety Report 9737500 (Version 1)
Quarter: 2013Q4

REPORT INFORMATION
  Report Type: Spontaneous
  Country: CH (occurrence: CH)
  Receive Date: 20131206
  Receipt Date: 20131206
  Transmission Date: 20140711
  Serious: Yes (Other)
  Sender: FDA-Public Use
  Company Number: CH-ABBVIE-13P-151-1176728-00

PATIENT
  Age: 85 Year
  Sex: Female

DRUGS (12)
  1. CREON [Suspect]
     Indication: PANCREATIC INSUFFICIENCY
     Route: 048
     Dates: start: 20131119
  2. CREON [Suspect]
     Indication: DIARRHOEA
  3. IMODIUM [Suspect]
     Indication: DIARRHOEA
     Dosage: LINGUAL
     Route: 048
     Dates: start: 20131101, end: 20131124
  4. AMLODIPIN ACTAVIS [Concomitant]
     Indication: PRODUCT USED FOR UNKNOWN INDICATION
  5. BENEFIBRE [Concomitant]
     Indication: GASTROINTESTINAL MOTILITY DISORDER
  6. DIPIPERON [Concomitant]
     Indication: PRODUCT USED FOR UNKNOWN INDICATION
  7. EXELON [Concomitant]
     Indication: PRODUCT USED FOR UNKNOWN INDICATION
     Dates: start: 20131114
  8. IMOVANE [Concomitant]
     Indication: PRODUCT USED FOR UNKNOWN INDICATION
  9. PANTOZOL [Concomitant]
     Indication: PRODUCT USED FOR UNKNOWN INDICATION
     Dosage: IN THE MORNING
  10. REMERON [Concomitant]
     Indication: PRODUCT USED FOR UNKNOWN INDICATION
     Dosage: IN THE EVENING
  11. URISPAS [Concomitant]
     Indication: PRODUCT USED FOR UNKNOWN INDICATION
     Dosage: IN THE EVENING
  12. UNKNOWN DERMATOLOGIC DRUGS [Concomitant]
     Indication: PRODUCT USED FOR UNKNOWN INDICATION

REACTIONS (3)
  - Respiratory distress [Unknown]
  - Oedema mucosal [Not Recovered/Not Resolved]
  - Angioedema [Not Recovered/Not Resolved]
